FAERS Safety Report 25486480 (Version 1)
Quarter: 2025Q2

REPORT INFORMATION
  Report Type: Spontaneous
  Country: CA (occurrence: CA)
  Receive Date: 20250627
  Receipt Date: 20250627
  Transmission Date: 20250717
  Serious: Yes (Other)
  Sender: ACCORD
  Company Number: None

PATIENT
  Age: 51 Year
  Sex: Female

DRUGS (2)
  1. METHOTREXATE SODIUM [Suspect]
     Active Substance: METHOTREXATE SODIUM
     Indication: Crohn^s disease
     Route: 048
  2. HUMIRA [Suspect]
     Active Substance: ADALIMUMAB
     Indication: Crohn^s disease
     Route: 058

REACTIONS (8)
  - Intervertebral disc protrusion [Unknown]
  - Back pain [Unknown]
  - Cervical cyst [Unknown]
  - Bartholin^s cyst [Unknown]
  - Anal abscess [Unknown]
  - Fistula [Unknown]
  - Off label use [Unknown]
  - Arthralgia [Unknown]
